FAERS Safety Report 25182352 (Version 1)
Quarter: 2025Q2

REPORT INFORMATION
  Report Type: Spontaneous
  Country: US (occurrence: US)
  Receive Date: 20250410
  Receipt Date: 20250410
  Transmission Date: 20250716
  Serious: No
  Sender: KINIKSA PHARMACEUTICALS
  Company Number: US-Kiniksa Pharmaceuticals Ltd.-2024KPU001481

PATIENT
  Age: 71 Year
  Sex: Male

DRUGS (4)
  1. ARCALYST [Suspect]
     Active Substance: RILONACEPT
     Indication: Pericarditis
     Dates: start: 20240820
  2. ARCALYST [Suspect]
     Active Substance: RILONACEPT
     Route: 058
     Dates: start: 20240827
  3. ARCALYST [Suspect]
     Active Substance: RILONACEPT
  4. ELIQUIS [Concomitant]
     Active Substance: APIXABAN

REACTIONS (18)
  - Fatigue [Unknown]
  - Injection site discomfort [Unknown]
  - Chest discomfort [Unknown]
  - Dyspnoea [Unknown]
  - Injection site erythema [Recovered/Resolved]
  - Injection site pruritus [Recovering/Resolving]
  - Abdominal pain [Recovered/Resolved]
  - Hypersensitivity [Unknown]
  - Myalgia [Recovered/Resolved]
  - Injection site warmth [Recovered/Resolved]
  - Wrong technique in product usage process [Unknown]
  - Injection site irritation [Recovering/Resolving]
  - Injection site pain [Recovered/Resolved]
  - Incorrect route of product administration [Unknown]
  - Liquid product physical issue [Unknown]
  - Injection site erythema [Not Recovered/Not Resolved]
  - Injection site pain [Not Recovered/Not Resolved]
  - Infection [Unknown]

NARRATIVE: CASE EVENT DATE: 20240801
